APPROVED DRUG PRODUCT: CLINDAMYCIN PHOSPHATE
Active Ingredient: CLINDAMYCIN PHOSPHATE
Strength: EQ 150MG BASE/ML
Dosage Form/Route: INJECTABLE;INJECTION
Application: A204748 | Product #001
Applicant: RISING PHARMA HOLDING INC
Approved: Oct 10, 2017 | RLD: No | RS: No | Type: DISCN